FAERS Safety Report 8704909 (Version 2)
Quarter: 2013Q1

REPORT INFORMATION
  Report Type: Report from Study
  Country: US (occurrence: US)
  Receive Date: 20120803
  Receipt Date: 20130325
  Transmission Date: 20140127
  Serious: Yes (Hospitalization, Other)
  Sender: FDA-Public Use
  Company Number: US-PFIZER INC-2012187288

PATIENT
  Age: 62 Year
  Sex: Female
  Weight: 78.8 kg

DRUGS (9)
  1. DOXORUBICIN HCL [Suspect]
     Indication: SARCOMA
     Dosage: 145 MG, OTHER
     Dates: start: 20120301, end: 20120503
  2. METOPROLOL [Suspect]
  3. PDGFRA [Suspect]
     Indication: SARCOMA
     Dosage: 1125 MG, OTHER
     Dates: start: 20120301, end: 20120621
  4. PDGFRA [Suspect]
     Dosage: UNK
     Dates: start: 20120705
  5. PULMICORT [Concomitant]
  6. XOPENEX [Concomitant]
  7. ACETYLSALICYLIC ACID [Concomitant]
  8. WARFARIN [Concomitant]
  9. LORAZEPAM [Concomitant]

REACTIONS (2)
  - Sinus bradycardia [Recovering/Resolving]
  - Troponin increased [Recovered/Resolved]
